FAERS Safety Report 7032931-0 (Version None)
Quarter: 2010Q4

REPORT INFORMATION
  Report Type: 
  Country: None (occurrence: None)
  Receive Date: 20101004
  Receipt Date: 20100923
  Transmission Date: 20110411
  Serious: Yes (Disabling)
  Sender: FDA-Public Use
  Company Number: 2010US003585

PATIENT
  Age: 47 Year
  Sex: Male
  Weight: 94 kg

DRUGS (23)
  1. PROGRAF [Suspect]
     Indication: RENAL TRANSPLANT
     Dosage: 4 MG, BID, ORAL; 2 MG, BID, ORAL; 2.5 MG AM, 2 MG PM, UID/QD, ORAL; 2.5 MG, BID, ORAL
     Route: 048
     Dates: start: 20100320
  2. PROGRAF [Suspect]
     Indication: RENAL TRANSPLANT
     Dosage: 4 MG, BID, ORAL; 2 MG, BID, ORAL; 2.5 MG AM, 2 MG PM, UID/QD, ORAL; 2.5 MG, BID, ORAL
     Route: 048
     Dates: start: 20100630
  3. PROGRAF [Suspect]
     Indication: RENAL TRANSPLANT
     Dosage: 4 MG, BID, ORAL; 2 MG, BID, ORAL; 2.5 MG AM, 2 MG PM, UID/QD, ORAL; 2.5 MG, BID, ORAL
     Route: 048
     Dates: start: 20100714
  4. PROGRAF [Suspect]
     Indication: RENAL TRANSPLANT
     Dosage: 4 MG, BID, ORAL; 2 MG, BID, ORAL; 2.5 MG AM, 2 MG PM, UID/QD, ORAL; 2.5 MG, BID, ORAL
     Route: 048
     Dates: start: 20100915
  5. CELLCEPT [Concomitant]
  6. PREDNISONE TAB [Concomitant]
  7. ATENOLOL [Concomitant]
  8. PROCARDIA XL [Concomitant]
  9. TERAZOSIN HCL [Concomitant]
  10. MAGNESIUM OXIDE (MAGNESIUM OXIDE) [Concomitant]
  11. ALLOPURINOL [Concomitant]
  12. SENSIPAR [Concomitant]
  13. NEXIUM [Concomitant]
  14. XANAX [Concomitant]
  15. NORCO [Concomitant]
  16. DARVOCET [Concomitant]
  17. DILAUDID [Concomitant]
  18. VITAMIN D NOS (VITAMIN D NOS) [Concomitant]
  19. OSTEO-BI-FLEX (CHONDROITIN SULFATE SODIUM, GLUCOSAMINE HYDROCHLORIDE) [Concomitant]
  20. SEPTRA [Concomitant]
  21. ACETAMINOPHEN [Concomitant]
  22. OMEPRAZOLE [Concomitant]
  23. DEXILANT [Concomitant]

REACTIONS (8)
  - BLOOD ALKALINE PHOSPHATASE INCREASED [None]
  - CHONDROMALACIA [None]
  - GAIT DISTURBANCE [None]
  - NO THERAPEUTIC RESPONSE [None]
  - OSTEOARTHRITIS [None]
  - PATELLOFEMORAL PAIN SYNDROME [None]
  - POST TRANSPLANT DISTAL LIMB SYNDROME [None]
  - SYNOVIAL CYST [None]
